FAERS Safety Report 9296737 (Version 1)
Quarter: 2013Q2

REPORT INFORMATION
  Report Type: Spontaneous
  Country: GB (occurrence: GB)
  Receive Date: 20130517
  Receipt Date: 20130517
  Transmission Date: 20140414
  Serious: Yes (Hospitalization)
  Sender: FDA-Public Use
  Company Number: GXKR2003GB02690

PATIENT
  Age: 77 Year
  Sex: Male

DRUGS (7)
  1. ATENOLOL [Suspect]
     Indication: HYPERTENSION
     Dosage: 50 MG, DAILY
     Route: 048
     Dates: start: 19990801, end: 20020324
  2. ASPIRIN [Concomitant]
     Route: 048
  3. NIZATIDINE [Concomitant]
     Route: 048
  4. GTN [Concomitant]
     Route: 048
  5. IMDUR [Concomitant]
     Route: 048
  6. AMIODARONE [Concomitant]
     Route: 048
  7. AMLODIPINE [Concomitant]
     Route: 048

REACTIONS (2)
  - Circulatory collapse [Unknown]
  - Sinus bradycardia [Unknown]
